FAERS Safety Report 10235915 (Version 1)
Quarter: 2014Q1

REPORT INFORMATION
  Report Type: Spontaneous
  Country: US (occurrence: None)
  Receive Date: 20140306
  Receipt Date: 20140306
  Transmission Date: 20141002
  Serious: Yes (Disabling)
  Sender: FDA-Public Use
  Company Number: 163-21880-13103846

PATIENT
  Age: 69 Year
  Sex: Female

DRUGS (3)
  1. REVLIMID (LENALIDOMIDE) (10 MILLIGRAM, CAPSULES) [Suspect]
     Indication: PLASMA CELL MYELOMA
     Dosage: 10 MG, 14 IN 14 D, PO
     Route: 048
     Dates: start: 20130909, end: 20130913
  2. DEXAMETHASONE (DEXAMETHASONE) (UNKNOWN) [Suspect]
     Dosage: 1 IN 1 WK, UNK
     Dates: start: 20130909
  3. VELCADE (BORTEZOMIB) (UNKNOWN) [Suspect]
     Indication: PLASMA CELL MYELOMA
     Dosage: DAYS 1, 4, 8, 11, UNK
     Dates: start: 20130909

REACTIONS (2)
  - Hypoaesthesia [None]
  - Tremor [None]
